FAERS Safety Report 9220854 (Version 1)
Quarter: 2013Q2

REPORT INFORMATION
  Report Type: Spontaneous
  Country: US (occurrence: US)
  Receive Date: 20130409
  Receipt Date: 20130409
  Transmission Date: 20140414
  Serious: No
  Sender: FDA-Public Use
  Company Number: US-BAYER-2013-044397

PATIENT
  Sex: Female

DRUGS (4)
  1. MIDOL EXTENDED RELIEF [Suspect]
     Indication: DYSMENORRHOEA
  2. TYLENOL [Concomitant]
  3. IBUPROFEN [Concomitant]
  4. ADVIL [Concomitant]

REACTIONS (1)
  - Drug ineffective [None]
